FAERS Safety Report 12361825 (Version 1)
Quarter: 2016Q2

REPORT INFORMATION
  Report Type: Spontaneous
  Country: US (occurrence: US)
  Receive Date: 20160512
  Receipt Date: 20160512
  Transmission Date: 20160815
  Serious: No
  Sender: FDA-Public Use
  Company Number: US-SA-2016SA064496

PATIENT
  Age: 62 Year
  Sex: Female
  Weight: 56.9 kg

DRUGS (32)
  1. AMICAR [Concomitant]
     Active Substance: AMINOCAPROIC ACID
     Indication: TOOTH DISORDER
  2. COLACE [Concomitant]
     Active Substance: DOCUSATE SODIUM
     Route: 048
  3. FERROUS FUMARATE [Concomitant]
     Active Substance: FERROUS FUMARATE
     Route: 048
  4. XANAX [Concomitant]
     Active Substance: ALPRAZOLAM
     Indication: SLEEP DISORDER
     Route: 048
  5. ZITHROMAX [Concomitant]
     Active Substance: AZITHROMYCIN DIHYDRATE
     Indication: TOOTH DISORDER
     Route: 048
  6. TICAGRELOR [Concomitant]
     Active Substance: TICAGRELOR
     Route: 048
  7. VITAMIN D3 [Concomitant]
     Active Substance: CHOLECALCIFEROL
     Dosage: DOSE:2000 UNIT(S)
     Route: 048
  8. FLONASE [Concomitant]
     Active Substance: FLUTICASONE PROPIONATE
     Dosage: FORM: NASAL SPRAY
     Route: 045
  9. ASPIRIN. [Concomitant]
     Active Substance: ASPIRIN
     Route: 048
  10. ZETIA [Concomitant]
     Active Substance: EZETIMIBE
     Route: 048
  11. GLUCAGON. [Concomitant]
     Active Substance: GLUCAGON
  12. NITROLINGUAL [Concomitant]
     Active Substance: NITROGLYCERIN
     Indication: CHEST PAIN
     Dosage: PLACE 1 SPRAY UNDER THE TONGUE EVERY 5 MINUTES AS NEEDED. MAY TAKE UPTO 3 DOSES
  13. NYSTATIN/TRIAMCINOLONE ACETONIDE [Concomitant]
  14. LOPRESSOR [Concomitant]
     Active Substance: METOPROLOL TARTRATE
     Route: 048
  15. PRILOSEC [Concomitant]
     Active Substance: OMEPRAZOLE MAGNESIUM
     Route: 048
  16. ONE TOUCH GLUCOSE METER [Concomitant]
  17. MIRALAX [Concomitant]
     Active Substance: POLYETHYLENE GLYCOL 3350
     Indication: CONSTIPATION
     Dosage: TAKE 17 MG AS NEEDED. MIX IN 4-8 OUNCES OF FLUID PRIOR TO TAKING 8.5, DAILY PRN
     Route: 048
  18. ALIROCUMAB PREFILLED PEN [Suspect]
     Active Substance: ALIROCUMAB
     Indication: LOW DENSITY LIPOPROTEIN
     Dates: start: 20151215, end: 20160323
  19. DEXTRIN [Concomitant]
     Active Substance: ICODEXTRIN
     Route: 048
  20. CALTRATE [Concomitant]
     Active Substance: CALCIUM CARBONATE
     Route: 048
  21. VOLTAREN [Concomitant]
     Active Substance: DICLOFENAC SODIUM
     Route: 061
  22. MAGNESIUM [Concomitant]
     Active Substance: MAGNESIUM
     Route: 048
  23. PANTHENOL/RETINOL/THIAMINE HYDROCHLORIDE/ASCORBIC ACID/ERGOCALCIFEROL/FOLIC ACID/RIBOFLAVIN/NICOTINA [Concomitant]
     Route: 048
  24. PRAVACHOL [Concomitant]
     Active Substance: PRAVASTATIN SODIUM
     Route: 048
  25. VITAMIN C [Concomitant]
     Active Substance: ASCORBIC ACID
     Dosage: DOSE: TAKE 500 MG BY MOUTH DAILY. 250 MG DAILY
     Route: 048
  26. TOPICORT [Concomitant]
     Active Substance: DESOXIMETASONE
     Route: 061
  27. APIDRA [Concomitant]
     Active Substance: INSULIN GLULISINE
     Dosage: DOSE: USE UPTO 225 UNITS IN (INSULIN PUMP)
  28. KLOR-CON [Concomitant]
     Active Substance: POTASSIUM CHLORIDE
     Route: 048
  29. PRALUENT [Suspect]
     Active Substance: ALIROCUMAB
     Indication: LOW DENSITY LIPOPROTEIN
     Route: 065
     Dates: start: 20151215, end: 20160323
  30. LASIX [Concomitant]
     Active Substance: FUROSEMIDE
     Indication: OEDEMA
     Route: 048
  31. IMDUR [Concomitant]
     Active Substance: ISOSORBIDE MONONITRATE
  32. DELTASONE [Concomitant]
     Active Substance: PREDNISONE
     Route: 048

REACTIONS (8)
  - Injection site pain [Not Recovered/Not Resolved]
  - Gait disturbance [Not Recovered/Not Resolved]
  - Gait disturbance [Not Recovered/Not Resolved]
  - Injection site reaction [Not Recovered/Not Resolved]
  - Injection site discolouration [Not Recovered/Not Resolved]
  - Injection site bruising [Not Recovered/Not Resolved]
  - Erythema [Not Recovered/Not Resolved]
  - Injection site warmth [Not Recovered/Not Resolved]

NARRATIVE: CASE EVENT DATE: 201603
